FAERS Safety Report 9401166 (Version 3)
Quarter: 2014Q2

REPORT INFORMATION
  Report Type: Spontaneous
  Country: GB (occurrence: GB)
  Receive Date: 20130715
  Receipt Date: 20140428
  Transmission Date: 20141212
  Serious: Yes (Hospitalization, Other)
  Sender: FDA-Public Use
  Company Number: GB-TEVA-417155ISR

PATIENT
  Age: 2 Year
  Sex: Female

DRUGS (43)
  1. VINCRISTINE [Suspect]
     Indication: SARCOMA METASTATIC
     Dosage: 8, 15 OF CYCLE, LAST DOSE PRIOR TO SAE 23/NOV/2011
     Route: 042
     Dates: start: 20110712
  2. DOXORUBICIN NOS [Suspect]
     Indication: SARCOMA METASTATIC
     Dosage: SAE WAS TAKEN ON 31/AUG/2011
     Route: 042
     Dates: start: 20110712
  3. LYOVAC COSMEGEN [Suspect]
     Indication: SARCOMA METASTATIC
     Dosage: LAST DOSE PRIOR TO SAE WAS TAKEN ON 30/AUG/2011
     Route: 042
     Dates: start: 20110712
  4. LYOVAC COSMEGEN [Suspect]
     Route: 050
     Dates: start: 20110712
  5. LYOVAC COSMEGEN [Suspect]
     Route: 050
     Dates: start: 20110712
  6. BEVACIZUMAB [Suspect]
     Indication: SARCOMA METASTATIC
     Dosage: 65 MILLIGRAM DAILY; 05/SEP/2012
     Route: 042
     Dates: start: 20110712
  7. IFOSFAMIDE [Suspect]
     Indication: SARCOMA METASTATIC
     Dosage: SAE WAS TAKEN ON 24/NOV/2011
     Route: 042
     Dates: start: 20110712
  8. MESNA [Suspect]
     Indication: SARCOMA METASTATIC
     Dosage: TAKEN ON 31/AUG/2011
     Route: 042
     Dates: start: 20110712
  9. MESNA [Suspect]
     Route: 050
  10. MESNA [Suspect]
     Dosage: 21/SEP/2011
     Route: 050
     Dates: start: 20110712
  11. VINORELBINE [Suspect]
     Indication: RHABDOMYOSARCOMA
     Dosage: 29/AUG/2012, 08/MAY/2012
     Route: 050
     Dates: start: 20120301
  12. CYCLOPHOSPHAMIDE [Suspect]
     Indication: RHABDOMYOSARCOMA
     Dosage: 07/SEP/2012, 11/MAY/2012
     Route: 048
     Dates: start: 20120301
  13. CYCLOPHOSPHAMIDE [Suspect]
     Dates: start: 20120623
  14. CYCLOPHOSPHAMIDE [Suspect]
     Dates: start: 20120907
  15. CYCLOPHOSPHAMIDE [Suspect]
     Dates: start: 20120511
  16. PARACETAMOL [Concomitant]
     Indication: PRODUCT USED FOR UNKNOWN INDICATION
     Route: 048
     Dates: start: 20110817
  17. ONDANSETRON [Concomitant]
     Indication: PRODUCT USED FOR UNKNOWN INDICATION
     Dosage: 3 MILLIGRAM DAILY;
     Route: 048
     Dates: start: 20110817
  18. ONDANSETRON [Concomitant]
     Route: 048
     Dates: start: 20110901, end: 20110907
  19. ONDANSETRON [Concomitant]
     Route: 048
     Dates: start: 20110927
  20. ONDANSETRON [Concomitant]
     Dates: start: 20111125, end: 20111129
  21. ONDANSETRON [Concomitant]
     Dates: start: 20110712
  22. ONDANSETRON [Concomitant]
     Dates: start: 20120915
  23. FLUCONAZOLE [Concomitant]
     Indication: PRODUCT USED FOR UNKNOWN INDICATION
     Route: 050
  24. LEVOMEPROMAZINE [Concomitant]
     Indication: PRODUCT USED FOR UNKNOWN INDICATION
     Route: 050
     Dates: start: 20110713
  25. LEVOMEPROMAZINE [Concomitant]
     Dates: start: 20111125, end: 20111127
  26. CO-TRIMOXAZOLE [Concomitant]
     Indication: PRODUCT USED FOR UNKNOWN INDICATION
     Route: 048
     Dates: start: 20110716
  27. DOCUSATE [Concomitant]
     Indication: PRODUCT USED FOR UNKNOWN INDICATION
     Dosage: 112.5 MILLIGRAM DAILY;
     Route: 048
     Dates: start: 20110714
  28. DOCUSATE [Concomitant]
     Dates: start: 20111125
  29. DOCUSATE [Concomitant]
     Dates: start: 20111230
  30. GENTAMICIN [Concomitant]
     Indication: PRODUCT USED FOR UNKNOWN INDICATION
     Dosage: 83 MILLIGRAM DAILY;
     Route: 050
     Dates: start: 20110817, end: 20110824
  31. PIPERACILLIN AND TAZOBACTAM [Concomitant]
     Indication: PRODUCT USED FOR UNKNOWN INDICATION
     Dosage: 1070
     Route: 050
     Dates: start: 20110817, end: 20110824
  32. MORPHINE [Concomitant]
     Indication: PRODUCT USED FOR UNKNOWN INDICATION
     Dosage: DRUG REPORTED AS MORPHINE SULFATE
     Route: 048
     Dates: start: 20110817
  33. MOVICOL [Concomitant]
     Indication: PRODUCT USED FOR UNKNOWN INDICATION
     Dosage: TDD: 2
     Dates: start: 20110820
  34. MOVICOL [Concomitant]
     Dosage: TDD: 1
     Dates: start: 20110901, end: 20110907
  35. MOVICOL [Concomitant]
     Dosage: TDD: 2
     Dates: start: 20120326
  36. GRANULOCYTE COLONY-STIMULATING FACTOR NOS [Concomitant]
     Indication: PRODUCT USED FOR UNKNOWN INDICATION
     Route: 050
     Dates: start: 20110903
  37. GRANULOCYTE COLONY-STIMULATING FACTOR NOS [Concomitant]
     Route: 050
     Dates: start: 20110924
  38. EMOLLIENT BASE [Concomitant]
     Indication: PRODUCT USED FOR UNKNOWN INDICATION
     Dosage: REPORTED AS 50 AND 50 EMOLLIENT CREAM
     Dates: start: 20111012
  39. DIHYDROCODEINE [Concomitant]
     Indication: PRODUCT USED FOR UNKNOWN INDICATION
     Route: 048
     Dates: start: 20110928
  40. CEFIXIME [Concomitant]
     Indication: PRODUCT USED FOR UNKNOWN INDICATION
     Dates: start: 20120417
  41. TEMOZOLOMIDE [Concomitant]
     Indication: PRODUCT USED FOR UNKNOWN INDICATION
     Dates: start: 20120915
  42. IRINOTECAN [Concomitant]
     Indication: PRODUCT USED FOR UNKNOWN INDICATION
     Dates: start: 20120915
  43. FILGRASTIM [Concomitant]
     Indication: PRODUCT USED FOR UNKNOWN INDICATION
     Dates: start: 20120903

REACTIONS (4)
  - Febrile neutropenia [Recovered/Resolved]
  - Candida test positive [Recovered/Resolved]
  - Mucosal inflammation [Recovered/Resolved]
  - Epistaxis [Recovered/Resolved]
